FAERS Safety Report 20054698 (Version 3)
Quarter: 2022Q1

REPORT INFORMATION
  Report Type: Report from Study
  Country: EE (occurrence: EE)
  Receive Date: 20211110
  Receipt Date: 20220201
  Transmission Date: 20220423
  Serious: Yes (Hospitalization, Other)
  Sender: FDA-Public Use
  Company Number: EE-NOVARTISPH-NVSC2021EE248356

PATIENT
  Age: 7 Year
  Sex: Female
  Weight: 25 kg

DRUGS (11)
  1. DABRAFENIB [Suspect]
     Active Substance: DABRAFENIB
     Indication: Glioma
     Dosage: 100 MG, BID
     Route: 048
     Dates: start: 20210806, end: 20211021
  2. TRAMETINIB [Suspect]
     Active Substance: TRAMETINIB
     Indication: Glioma
     Dosage: 0.5 MG, BID
     Route: 048
     Dates: start: 20210806, end: 20211021
  3. PIPERACILLIN SODIUM\TAZOBACTAM SODIUM [Concomitant]
     Active Substance: PIPERACILLIN SODIUM\TAZOBACTAM SODIUM
     Indication: Product used for unknown indication
     Dosage: UNK (1,9 GX4)
     Route: 042
     Dates: start: 20211018, end: 20211023
  4. MEROPENEM [Concomitant]
     Active Substance: MEROPENEM
     Indication: Product used for unknown indication
     Dosage: 500 MG (X3)
     Route: 042
     Dates: start: 20211023, end: 20211104
  5. CASPOFUNGIN [Concomitant]
     Active Substance: CASPOFUNGIN
     Indication: Product used for unknown indication
     Dosage: 70 MG (X1)
     Route: 042
     Dates: start: 20211101
  6. CASPOFUNGIN [Concomitant]
     Active Substance: CASPOFUNGIN
     Dosage: 45 MG (X1)
     Route: 042
     Dates: start: 20211102, end: 20211112
  7. ACYCLOVIR [Concomitant]
     Active Substance: ACYCLOVIR
     Indication: Product used for unknown indication
     Dosage: 500 MG (X3) PER DAY
     Route: 065
     Dates: start: 20211022, end: 20211103
  8. GRANISETRON [Concomitant]
     Active Substance: GRANISETRON
     Indication: Product used for unknown indication
     Dosage: 1 MG (1-2X DAY)
     Route: 065
     Dates: start: 20211022, end: 20211112
  9. ESOMEPRAZOLE [Concomitant]
     Active Substance: ESOMEPRAZOLE
     Indication: Product used for unknown indication
     Dosage: 20 MG (2X DAY)
     Route: 065
     Dates: start: 20211020, end: 20211112
  10. METOCLOPRAMIDE [Concomitant]
     Active Substance: METOCLOPRAMIDE
     Indication: Product used for unknown indication
     Dosage: 2.5 MG (X3 DAY)
     Route: 065
     Dates: start: 20211022, end: 20211112
  11. KONAKION [Concomitant]
     Active Substance: PHYTONADIONE
     Indication: Product used for unknown indication
     Dosage: 7 MG
     Route: 042
     Dates: start: 20211028

REACTIONS (7)
  - Infection [Recovering/Resolving]
  - Myalgia [Recovering/Resolving]
  - Decreased appetite [Not Recovered/Not Resolved]
  - Constipation [Recovered/Resolved]
  - Vomiting [Recovered/Resolved]
  - Rash [Recovering/Resolving]
  - Dysgeusia [Not Recovered/Not Resolved]

NARRATIVE: CASE EVENT DATE: 20211009
